FAERS Safety Report 12067363 (Version 2)
Quarter: 2016Q1

REPORT INFORMATION
  Report Type: Spontaneous
  Country: US (occurrence: US)
  Receive Date: 20160211
  Receipt Date: 20160212
  Transmission Date: 20160526
  Serious: No
  Sender: FDA-Public Use
  Company Number: US-TEVA-627721ACC

PATIENT
  Age: 19 Year
  Sex: Female
  Weight: 58.11 kg

DRUGS (2)
  1. PARAGARD T 380A [Suspect]
     Active Substance: COPPER
     Indication: CONTRACEPTION
     Dates: start: 20151222
  2. MULTIVITAMIN [Concomitant]
     Active Substance: VITAMINS
     Indication: VITAMIN SUPPLEMENTATION

REACTIONS (8)
  - Menorrhagia [Recovered/Resolved]
  - Pelvic discomfort [Not Recovered/Not Resolved]
  - Menstruation irregular [Recovered/Resolved]
  - Pyrexia [Recovered/Resolved]
  - Pollakiuria [Not Recovered/Not Resolved]
  - Oropharyngeal pain [Not Recovered/Not Resolved]
  - Chills [Recovered/Resolved]
  - Hyperhidrosis [Recovered/Resolved]

NARRATIVE: CASE EVENT DATE: 20151222
